FAERS Safety Report 9148513 (Version 1)
Quarter: 2013Q1

REPORT INFORMATION
  Report Type: Spontaneous
  Country: US (occurrence: None)
  Receive Date: 20130226
  Receipt Date: 20130226
  Transmission Date: 20140127
  Serious: Yes (Death)
  Sender: FDA-Public Use
  Company Number: 1610735

PATIENT
  Sex: Female

DRUGS (3)
  1. EPIRUBICIN  HYDROCHLORIDE [Suspect]
     Indication: BREAST CANCER STAGE III
     Dosage: NOT REPORTED,  CYCLICAL,  UNKNOWN?UNKNOWN
  2. CYCLOPHOSPHAMIDE [Suspect]
     Indication: BREAST CANCER STAGE III
     Dosage: NOT REPORTED,  CYCLICAL,  UNKNOWN?UNKNOWN
  3. TAXOTERE [Suspect]
     Indication: BREAST CANCER STAGE III
     Dosage: NOT REPORTED,  CYCLICAL,  UNKNOWN?UNKNOWN

REACTIONS (7)
  - Hepatitis B [None]
  - Hepatic failure [None]
  - Retroperitoneal haemorrhage [None]
  - Coma hepatic [None]
  - Hepatorenal syndrome [None]
  - Anaemia [None]
  - Coagulopathy [None]
